FAERS Safety Report 10149851 (Version 1)
Quarter: 2014Q2

REPORT INFORMATION
  Report Type: Spontaneous
  Country: US (occurrence: None)
  Receive Date: 20140501
  Receipt Date: 20140501
  Transmission Date: 20141212
  Serious: Yes (Life-Threatening, Hospitalization)
  Sender: FDA-Public Use
  Company Number: None

PATIENT
  Age: 50 Year
  Sex: Male
  Weight: 81.65 kg

DRUGS (3)
  1. LISINOPRIL [Suspect]
     Indication: HYPERTENSION
     Dosage: 1/2 PILL
     Route: 048
     Dates: start: 20140115, end: 20140328
  2. AMLODIPINE BESYLATE [Concomitant]
  3. BENEDRYL [Concomitant]

REACTIONS (5)
  - Lip swelling [None]
  - Swelling face [None]
  - Hypersensitivity [None]
  - Pharyngeal oedema [None]
  - Throat tightness [None]
